FAERS Safety Report 9129121 (Version 1)
Quarter: 2013Q1

REPORT INFORMATION
  Report Type: Other
  Country: US (occurrence: US)
  Receive Date: 20130125
  Receipt Date: 20130125
  Transmission Date: 20140127
  Serious: Yes (Death)
  Sender: FDA-Public Use
  Company Number: US-FRI-1000041991

PATIENT
  Age: 64 Year
  Sex: Female

DRUGS (21)
  1. DILTIAZEM [Suspect]
  2. ESCITALOPRAM [Suspect]
  3. DESIPRAMINE [Suspect]
  4. VENLAFAXINE [Suspect]
  5. LAMOTRIGINE [Suspect]
  6. HYDROCHLOROTHIAZIDE [Suspect]
  7. ARMODAFINIL [Suspect]
  8. POTASSIUM CHLORIDE [Suspect]
  9. TRIFLUOPERAZINE [Suspect]
  10. THYROID PREPARATIONS [Suspect]
  11. PANTOPRAZOLE [Suspect]
  12. LANSOPRAZOLE [Suspect]
  13. ROVUSTATIN [Suspect]
  14. NAPROXEN [Suspect]
  15. NITROFURANTOIN [Suspect]
  16. DICLOFENAC [Suspect]
  17. ACETAMINOPHEN\HYDROCODONE [Suspect]
  18. ACETAMINOPHENPROPOXYPHENE [Suspect]
  19. SOLIFENACIN [Suspect]
  20. CIPROFLOXACIN [Suspect]
  21. PROGESTIN [Suspect]

REACTIONS (3)
  - Completed suicide [Fatal]
  - Cardiac arrest [None]
  - Respiratory arrest [None]
